FAERS Safety Report 9417840 (Version 1)
Quarter: 2013Q3

REPORT INFORMATION
  Report Type: Spontaneous
  Country: US (occurrence: US)
  Receive Date: 20130724
  Receipt Date: 20130724
  Transmission Date: 20140515
  Serious: No
  Sender: FDA-Public Use
  Company Number: US-B.I. PHARMACEUTICALS,INC./RIDGEFIELD-2013-BI-21179BP

PATIENT
  Age: 59 Year
  Sex: Female
  Weight: 100 kg

DRUGS (5)
  1. COMBIVENT [Suspect]
     Indication: CHRONIC OBSTRUCTIVE PULMONARY DISEASE
     Dosage: STRENGTH: 20 MCG / 100 MCG; DAILY DOSE: 160MCG/800MCG
     Route: 055
     Dates: start: 20130624
  2. ASPIRIN [Concomitant]
     Dosage: 81 MG
     Route: 048
  3. LOPRESSOR [Concomitant]
     Indication: ARRHYTHMIA
     Dosage: 100 MG
     Route: 048
  4. CRESTOR [Concomitant]
     Indication: BLOOD CHOLESTEROL INCREASED
     Dosage: 20 MG
     Route: 048
  5. NEURONTIN [Concomitant]
     Indication: HOT FLUSH
     Dosage: 900 MG
     Route: 048

REACTIONS (3)
  - Chest discomfort [Not Recovered/Not Resolved]
  - Drug prescribing error [Not Recovered/Not Resolved]
  - Product quality issue [Recovered/Resolved]
